FAERS Safety Report 12240518 (Version 3)
Quarter: 2016Q2

REPORT INFORMATION
  Report Type: Spontaneous
  Country: US (occurrence: US)
  Receive Date: 20160405
  Receipt Date: 20160422
  Transmission Date: 20160815
  Serious: Yes (Other)
  Sender: FDA-Public Use
  Company Number: US-AMGEN-USASP2016040362

PATIENT
  Age: 56 Year
  Sex: Female

DRUGS (1)
  1. NEULASTA [Suspect]
     Active Substance: PEGFILGRASTIM
     Indication: PRODUCT USED FOR UNKNOWN INDICATION
     Dosage: UNK
     Route: 065

REACTIONS (11)
  - Nausea [Unknown]
  - Feeling abnormal [Unknown]
  - Device malfunction [Unknown]
  - Application site swelling [Unknown]
  - Application site erythema [Unknown]
  - Application site haemorrhage [Recovered/Resolved]
  - Asthenia [Unknown]
  - Application site pain [Unknown]
  - Incorrect dose administered [Unknown]
  - Neutropenia [Unknown]
  - Bone pain [Unknown]

NARRATIVE: CASE EVENT DATE: 201603
